FAERS Safety Report 18814622 (Version 3)
Quarter: 2021Q1

REPORT INFORMATION
  Report Type: Spontaneous
  Country: GB (occurrence: GB)
  Receive Date: 20210201
  Receipt Date: 20210310
  Transmission Date: 20210419
  Serious: Yes (Other)
  Sender: FDA-Public Use
  Company Number: GB-BEH-2021127612

PATIENT
  Sex: Female

DRUGS (2)
  1. RHOPHYLAC [Suspect]
     Active Substance: HUMAN RHO(D) IMMUNE GLOBULIN
     Dosage: UNK
     Route: 065
     Dates: start: 20191002
  2. RHOPHYLAC [Suspect]
     Active Substance: HUMAN RHO(D) IMMUNE GLOBULIN
     Dosage: UNK
     Route: 065
     Dates: start: 20191002

REACTIONS (11)
  - Tremor [Unknown]
  - Headache [Unknown]
  - Loss of consciousness [Unknown]
  - Eye movement disorder [Unknown]
  - Foetal hypokinesia [Unknown]
  - Syncope [Unknown]
  - Conjunctival haemorrhage [Unknown]
  - Blood pressure decreased [Unknown]
  - Malaise [Unknown]
  - Exposure during pregnancy [Unknown]
  - Seizure [Unknown]

NARRATIVE: CASE EVENT DATE: 20191002
